FAERS Safety Report 6718690-7 (Version None)
Quarter: 2010Q2

REPORT INFORMATION
  Report Type: 
  Country: None (occurrence: None)
  Receive Date: 20100506
  Receipt Date: 20100504
  Transmission Date: 20101027
  Serious: Yes (Hospitalization)
  Sender: FDA-Public Use
  Company Number: SP02876

PATIENT
  Age: 72 Year
  Sex: Female
  Weight: 59.8748 kg

DRUGS (12)
  1. MOVIPREP [Suspect]
     Indication: BOWEL PREPARATION
     Dosage: 2 LIT, ORAL
     Route: 048
     Dates: start: 20100406, end: 20100406
  2. LIPITOR [Concomitant]
  3. FOSAMAX [Concomitant]
  4. PREMARIN [Concomitant]
  5. LISINOPRIL [Concomitant]
  6. VITAMIN D3 [Concomitant]
  7. AMINO ACID SUPPLEMENTS [Concomitant]
  8. CRANBRERRY EXTRACT [Concomitant]
  9. ASPIRIN [Concomitant]
  10. ESTER-C [Concomitant]
  11. FISH OIL [Concomitant]
  12. CALCIUM [Concomitant]

REACTIONS (2)
  - DRUG HYPERSENSITIVITY [None]
  - SWOLLEN TONGUE [None]
